FAERS Safety Report 5880210-7 (Version None)
Quarter: 2008Q3

REPORT INFORMATION
  Report Type: 
  Country: None (occurrence: None)
  Receive Date: 20080912
  Receipt Date: 20080902
  Transmission Date: 20090109
  Serious: Yes (Other)
  Sender: FDA-Public Use
  Company Number: AU-PFIZER INC-2008074032

PATIENT
  Age: 46 Year
  Sex: Male

DRUGS (4)
  1. DILANTIN [Suspect]
  2. DILANTIN [Suspect]
  3. DILANTIN [Suspect]
  4. PRIMIDONE [Concomitant]

REACTIONS (3)
  - GINGIVAL SWELLING [None]
  - LIP SWELLING [None]
  - VITAMIN D DEFICIENCY [None]
